FAERS Safety Report 19588661 (Version 1)
Quarter: 2021Q3

REPORT INFORMATION
  Report Type: Spontaneous
  Country: US (occurrence: US)
  Receive Date: 20210721
  Receipt Date: 20210721
  Transmission Date: 20211014
  Serious: No
  Sender: FDA-Public Use
  Company Number: None

PATIENT
  Age: 70 Year
  Sex: Female
  Weight: 82 kg

DRUGS (1)
  1. VANCOMYCIN [Suspect]
     Active Substance: VANCOMYCIN
     Indication: SKIN ULCER
     Route: 042
     Dates: start: 20210616, end: 20210707

REACTIONS (2)
  - Pruritus [None]
  - Antibiotic level above therapeutic [None]

NARRATIVE: CASE EVENT DATE: 20210707
